FAERS Safety Report 6507745-8 (Version None)
Quarter: 2009Q4

REPORT INFORMATION
  Report Type: 
  Country: None (occurrence: None)
  Receive Date: 20091221
  Receipt Date: 20091216
  Transmission Date: 20100525
  Serious: Yes (Other)
  Sender: FDA-Public Use
  Company Number: AR-PFIZER INC-2009311180

PATIENT
  Age: 53 Year

DRUGS (1)
  1. CHAMPIX [Suspect]
     Indication: TOBACCO USER
     Dosage: 1 MG, 2X/DAY, EVERY DAY
     Route: 048
     Dates: start: 20091001

REACTIONS (3)
  - PALPITATIONS [None]
  - SINUS ARREST [None]
  - SINUS BRADYCARDIA [None]
